FAERS Safety Report 6737327-4 (Version None)
Quarter: 2010Q2

REPORT INFORMATION
  Report Type: 
  Country: None (occurrence: None)
  Receive Date: 20100524
  Receipt Date: 20100507
  Transmission Date: 20101027
  Serious: Yes (Other)
  Sender: FDA-Public Use
  Company Number: US-JNJFOC-20100506062

PATIENT
  Sex: Female

DRUGS (7)
  1. CHILDREN'S TYLENOL PLUS COUGH + RUNNY NOSE CHERRY [Suspect]
     Indication: DRUG USE FOR UNKNOWN INDICATION
     Route: 065
  2. CHILDREN'S MOTRIN [Suspect]
     Route: 065
  3. CHILDREN'S MOTRIN [Suspect]
     Indication: DRUG USE FOR UNKNOWN INDICATION
     Route: 065
  4. CHILDREN'S TYLENOL LIQUID DYE-FREE CHERRY [Suspect]
     Route: 065
  5. CHILDREN'S TYLENOL LIQUID DYE-FREE CHERRY [Suspect]
     Indication: DRUG USE FOR UNKNOWN INDICATION
     Route: 065
  6. CHILDREN'S MOTRIN COLD [Suspect]
     Route: 065
  7. CHILDREN'S MOTRIN COLD [Suspect]
     Indication: DRUG USE FOR UNKNOWN INDICATION
     Route: 065

REACTIONS (3)
  - PRODUCT QUALITY ISSUE [None]
  - ULCER [None]
  - URTICARIA [None]
